FAERS Safety Report 6736883-X (Version None)
Quarter: 2010Q2

REPORT INFORMATION
  Report Type: 
  Country: None (occurrence: None)
  Receive Date: 20100520
  Receipt Date: 20100520
  Transmission Date: 20101027
  Serious: Yes (Hospitalization)
  Sender: FDA-Public Use
  Company Number: None

PATIENT
  Sex: Male
  Weight: 107 kg

DRUGS (3)
  1. CYTARABINE [Suspect]
     Dosage: 38.24 G
     Dates: end: 20100501
  2. ETOPOSIDE [Suspect]
     Dosage: 3620 MG
     Dates: end: 20100430
  3. G-CSF (FILGRASTIM, AMGEN) [Suspect]
     Dosage: 960 MCG

REACTIONS (9)
  - DIARRHOEA [None]
  - EPISTAXIS [None]
  - FEBRILE NEUTROPENIA [None]
  - HAEMATOCRIT DECREASED [None]
  - HAEMOGLOBIN DECREASED [None]
  - LABORATORY TEST INTERFERENCE [None]
  - MOUTH ULCERATION [None]
  - PLATELET COUNT DECREASED [None]
  - PNEUMONIA [None]
